FAERS Safety Report 21400308 (Version 1)
Quarter: 2022Q3

REPORT INFORMATION
  Report Type: Spontaneous
  Country: US (occurrence: None)
  Receive Date: 20220930
  Receipt Date: 20220930
  Transmission Date: 20221026
  Serious: Yes (Hospitalization)
  Sender: FDA-Public Use
  Company Number: None

PATIENT
  Sex: Male
  Weight: 15.5 kg

DRUGS (5)
  1. CYTARABINE [Suspect]
     Active Substance: CYTARABINE
  2. DEXRAZONAE [Concomitant]
  3. HYDROCORTISONE [Concomitant]
     Active Substance: HYDROCORTISONE
  4. METHOTREXATE [Concomitant]
     Active Substance: METHOTREXATE
  5. MITOXANTRONE HYDROCHLORIDE [Concomitant]
     Active Substance: MITOXANTRONE HYDROCHLORIDE

REACTIONS (7)
  - Febrile neutropenia [None]
  - Mucosal inflammation [None]
  - Abdominal pain [None]
  - Diarrhoea [None]
  - Streptococcus test positive [None]
  - Hypokalaemia [None]
  - Enterocolitis [None]

NARRATIVE: CASE EVENT DATE: 20210818
